FAERS Safety Report 6354855-4 (Version None)
Quarter: 2009Q3

REPORT INFORMATION
  Report Type: 
  Country: None (occurrence: None)
  Receive Date: 20090914
  Receipt Date: 20080421
  Transmission Date: 20100115
  Serious: Yes (Other)
  Sender: FDA-Public Use
  Company Number: US-ROCHE-561940

PATIENT

DRUGS (1)
  1. PLACEBO [Suspect]
     Dosage: THE FIRST AND FOURTH MONTHLY SHEETS ALWAYS CONTAINED ACTIVE PYRIMETHAMINE/SULFADOXINE.
     Route: 064

REACTIONS (1)
  - NEONATAL ASPHYXIA [None]
